FAERS Safety Report 5499263-3 (Version None)
Quarter: 2007Q4

REPORT INFORMATION
  Report Type: 
  Country: None (occurrence: None)
  Receive Date: 20071026
  Receipt Date: 20071022
  Transmission Date: 20080405
  Serious: Yes (Other)
  Sender: FDA-Public Use
  Company Number: DE-JNJFOC-20070806385

PATIENT
  Age: 26 Year
  Sex: Male
  Weight: 68 kg

DRUGS (3)
  1. RISPERDAL [Suspect]
     Route: 048
  2. RISPERDAL [Suspect]
     Indication: SCHIZOPHRENIA, PARANOID TYPE
     Route: 048
  3. TAVOR [Concomitant]
     Route: 048

REACTIONS (1)
  - NEUTROPHIL COUNT DECREASED [None]
